FAERS Safety Report 16715889 (Version 1)
Quarter: 2019Q4

REPORT INFORMATION
  Report Type: Spontaneous
  Country: US (occurrence: US)
  Receive Date: 20190817
  Receipt Date: 20190817
  Transmission Date: 20200122
  Serious: Yes (Life-Threatening, Hospitalization, Other)
  Sender: FDA-Public Use
  Company Number: None

PATIENT
  Age: 37 Year
  Sex: Female
  Weight: 117 kg

DRUGS (2)
  1. DEXTRAN [Suspect]
     Active Substance: DEXTRAN
     Indication: ANAEMIA
     Route: 042
     Dates: start: 20190809, end: 20190816
  2. MULTIVITAMINS [Concomitant]
     Active Substance: VITAMINS

REACTIONS (3)
  - Blood volume expansion [None]
  - Anaphylactic transfusion reaction [None]
  - Product complaint [None]

NARRATIVE: CASE EVENT DATE: 20190816
